FAERS Safety Report 13465170 (Version 1)
Quarter: 2017Q2

REPORT INFORMATION
  Report Type: Spontaneous
  Country: US (occurrence: US)
  Receive Date: 20170421
  Receipt Date: 20170421
  Transmission Date: 20170830
  Serious: Yes (Other)
  Sender: FDA-Public Use
  Company Number: US-ASTRAZENECA-2017SE40327

PATIENT
  Age: 63 Year
  Sex: Female
  Weight: 74.8 kg

DRUGS (14)
  1. ANASTROZOLE. [Suspect]
     Active Substance: ANASTROZOLE
     Route: 048
  2. DOCUSATE [Concomitant]
     Active Substance: DOCUSATE
     Dosage: 100 MG
  3. FASLODEX [Suspect]
     Active Substance: FULVESTRANT
     Route: 030
     Dates: start: 20161031
  4. IBRANCE [Suspect]
     Active Substance: PALBOCICLIB
     Indication: BREAST CANCER FEMALE
     Dosage: 125MG ONE CAPSULE DAILY FOR 3 WEEKS AND ONE WEEK OFF
     Route: 048
     Dates: start: 20170328
  5. LORATADINE. [Concomitant]
     Active Substance: LORATADINE
     Indication: HYPERSENSITIVITY
     Route: 065
  6. PRAVASTATIN. [Concomitant]
     Active Substance: PRAVASTATIN
     Indication: BLOOD CHOLESTEROL ABNORMAL
     Dosage: 40MG ONCE AT NIGHT
  7. WARFARIN [Concomitant]
     Active Substance: WARFARIN
     Dosage: 2.5MG ON TUESDAY, THURSDAY, SATURDAY AND SUNDAY AND SMG ON MONDAY,WEDNESDAY AND FRIDAY. HER LAST ...
  8. LIDOCAINE. [Concomitant]
     Active Substance: LIDOCAINE
  9. SENNA [Concomitant]
     Active Substance: SENNA LEAF\SENNOSIDES\SENNOSIDES A AND B
     Dosage: AS NEEDED
  10. IBRANCE [Suspect]
     Active Substance: PALBOCICLIB
     Indication: BREAST CANCER FEMALE
     Dosage: 125MG ONE CAPSULE DAILY FOR 3 WEEKS AND ONE WEEK OFF
     Route: 048
     Dates: start: 20170227
  11. OMEPRAZOLE. [Suspect]
     Active Substance: OMEPRAZOLE
     Indication: GASTROOESOPHAGEAL REFLUX DISEASE
     Dosage: 20MG ONCE AT NIGHT
     Route: 048
  12. ACETAMINOPHEN. [Concomitant]
     Active Substance: ACETAMINOPHEN
     Dosage: 500MG, ONE TO TWO TABLETS AS NEEDED
  13. PROBIOTICS [Concomitant]
     Active Substance: PROBIOTICS NOS
  14. HYDROCORTISONE. [Concomitant]
     Active Substance: HYDROCORTISONE
     Indication: PRURITUS

REACTIONS (12)
  - Platelet count decreased [Recovered/Resolved]
  - Somnolence [Unknown]
  - Red blood cell count decreased [Recovered/Resolved]
  - Injection site bruising [Unknown]
  - Platelet count decreased [None]
  - Malignant neoplasm progression [Unknown]
  - Mass [Unknown]
  - Hypoacusis [Unknown]
  - Cataract [Unknown]
  - White blood cell count decreased [Recovering/Resolving]
  - Pruritus [Unknown]
  - Injection site nerve damage [Unknown]
